FAERS Safety Report 10204024 (Version 1)
Quarter: 2014Q2

REPORT INFORMATION
  Report Type: Spontaneous
  Country: US (occurrence: None)
  Receive Date: 20140527
  Receipt Date: 20140527
  Transmission Date: 20141212
  Serious: Yes (Hospitalization)
  Sender: FDA-Public Use
  Company Number: None

PATIENT
  Age: 27 Year
  Sex: Female

DRUGS (12)
  1. PACLITAXEL [Suspect]
     Indication: NEOPLASM MALIGNANT
     Route: 042
     Dates: start: 20120213, end: 20120213
  2. ALPRAZOLAM [Concomitant]
  3. OXYCODONE-ACETAMINOPHEN [Concomitant]
  4. HYDROMORPHONE [Concomitant]
  5. RANITIDINE [Concomitant]
  6. DEXAMETHASONE [Concomitant]
  7. LORAZEPAM [Concomitant]
  8. ONDANSETRON [Concomitant]
  9. MAGNESIUM OXIDE [Concomitant]
  10. MELATONIN [Concomitant]
  11. IMPLANON [Concomitant]
  12. APREPITANT [Concomitant]

REACTIONS (9)
  - Back pain [None]
  - Heart rate increased [None]
  - Muscle tightness [None]
  - Pruritus [None]
  - Erythema [None]
  - Nausea [None]
  - Feeling abnormal [None]
  - Blood pressure decreased [None]
  - Infusion related reaction [None]
